FAERS Safety Report 15098880 (Version 2)
Quarter: 2018Q3

REPORT INFORMATION
  Report Type: Spontaneous
  Country: FR (occurrence: FR)
  Receive Date: 20180702
  Receipt Date: 20180713
  Transmission Date: 20181010
  Serious: Yes (Death, Hospitalization)
  Sender: FDA-Public Use
  Company Number: FR-MYLANLABS-2018M1046980

PATIENT
  Age: 53 Year
  Sex: Female

DRUGS (6)
  1. PREDNISOLONE. [Suspect]
     Active Substance: PREDNISOLONE
     Dosage: 10 MG, QD
     Route: 065
  2. CICLOSPORIN [Suspect]
     Active Substance: CYCLOSPORINE
     Indication: ANTIVIRAL TREATMENT
     Dosage: 800 MG, QD, STARTED AT DAY 5?38 POST TRANSPLANTATION
     Route: 065
  3. MYCOPHENOLATE MOFETIL. [Suspect]
     Active Substance: MYCOPHENOLATE MOFETIL
     Indication: ANTIVIRAL TREATMENT
     Dosage: 500 MG, QD, STARTED AT DAY 5 POST TRANSPLANTATION
     Route: 065
  4. CICLOSPORIN [Suspect]
     Active Substance: CYCLOSPORINE
     Dosage: 300?400 MG/QD; STARTED AT DAY 38 POST TRANSPLANTATION
     Route: 065
  5. BASILIXIMAB [Suspect]
     Active Substance: BASILIXIMAB
     Indication: ANTIVIRAL TREATMENT
     Dosage: DAY 1?5 POST TRANSPLANTATION
     Route: 065
  6. PREDNISOLONE. [Suspect]
     Active Substance: PREDNISOLONE
     Indication: ANTIVIRAL TREATMENT
     Dosage: 15 MG, QD, STARTED AT DAY 5?38 POST TRANSPLANTATION
     Route: 065

REACTIONS (6)
  - Multiple organ dysfunction syndrome [Fatal]
  - Cholangitis [Fatal]
  - Human herpesvirus 6 infection [Fatal]
  - Septic shock [Fatal]
  - Encephalopathy [Fatal]
  - Diarrhoea [Fatal]
